FAERS Safety Report 10101781 (Version 1)
Quarter: 2014Q2

REPORT INFORMATION
  Report Type: Spontaneous
  Country: US (occurrence: None)
  Receive Date: 20140423
  Receipt Date: 20140423
  Transmission Date: 20141212
  Serious: No
  Sender: FDA-Public Use
  Company Number: None

PATIENT
  Sex: 0

DRUGS (1)
  1. ASTEPRO [Suspect]
     Indication: SINUS CONGESTION

REACTIONS (2)
  - Nasal discomfort [None]
  - Epistaxis [None]
